FAERS Safety Report 14115844 (Version 3)
Quarter: 2017Q4

REPORT INFORMATION
  Report Type: Spontaneous
  Country: JP (occurrence: JP)
  Receive Date: 20171023
  Receipt Date: 20171227
  Transmission Date: 20180321
  Serious: Yes (Death, Hospitalization, Other)
  Sender: FDA-Public Use
  Company Number: JP-ELI_LILLY_AND_COMPANY-JP201710008200

PATIENT
  Age: 71 Year
  Sex: Female
  Weight: 35 kg

DRUGS (3)
  1. TS-1 [Suspect]
     Active Substance: GIMERACIL\OTERACIL\TEGAFUR
     Indication: COLON CANCER
     Dosage: 60 MG, UNKNOWN
     Route: 048
     Dates: start: 20170825, end: 20171012
  2. CPT-11 [Suspect]
     Active Substance: IRINOTECAN
     Indication: COLON CANCER
     Dosage: 140 MG, UNKNOWN
     Route: 041
     Dates: start: 20170825, end: 20170928
  3. ERBITUX [Suspect]
     Active Substance: CETUXIMAB
     Indication: COLON CANCER
     Dosage: 295 MG, UNKNOWN
     Route: 041
     Dates: start: 20170825, end: 20171005

REACTIONS (12)
  - Vomiting [Unknown]
  - Dizziness [Unknown]
  - Disease progression [Fatal]
  - Pyrexia [Unknown]
  - Fatigue [Unknown]
  - Gastrointestinal perforation [Fatal]
  - Abdominal abscess [Fatal]
  - Decreased appetite [Recovering/Resolving]
  - Off label use [Unknown]
  - Cardiac arrest [Fatal]
  - Coma [Fatal]
  - Deep vein thrombosis [Not Recovered/Not Resolved]

NARRATIVE: CASE EVENT DATE: 201709
